FAERS Safety Report 18475449 (Version 2)
Quarter: 2021Q1

REPORT INFORMATION
  Report Type: Report from Study
  Country: GB (occurrence: GB)
  Receive Date: 20201106
  Receipt Date: 20210129
  Transmission Date: 20210419
  Serious: Yes (Other)
  Sender: FDA-Public Use
  Company Number: NVSC2020GB231935

PATIENT
  Sex: Female

DRUGS (1)
  1. HYRIMOZ [Suspect]
     Active Substance: ADALIMUMAB-ADAZ
     Indication: RHEUMATOID ARTHRITIS
     Dosage: UNK (40 MG/0.8 MG/ML, EOW)
     Route: 058
     Dates: start: 20200818

REACTIONS (2)
  - Injection site pain [Unknown]
  - Haemorrhage [Unknown]
